FAERS Safety Report 21837542 (Version 1)
Quarter: 2023Q1

REPORT INFORMATION
  Report Type: Spontaneous
  Country: US (occurrence: None)
  Receive Date: 20230106
  Receipt Date: 20230106
  Transmission Date: 20230417
  Serious: No
  Sender: FDA-Public Use
  Company Number: None

PATIENT
  Age: 17 Year
  Sex: Male

DRUGS (1)
  1. DUPIXENT [Suspect]
     Active Substance: DUPILUMAB
     Indication: Dermatitis atopic
     Dosage: OTHER STRENGTH : 200MG/1.14;?FREQUENCY : EVERY OTHER WEEK;?
     Route: 058
     Dates: start: 202201

REACTIONS (2)
  - Device defective [None]
  - Product dose omission issue [None]

NARRATIVE: CASE EVENT DATE: 20230102
